FAERS Safety Report 6574780-3 (Version None)
Quarter: 2010Q1

REPORT INFORMATION
  Report Type: 
  Country: None (occurrence: None)
  Receive Date: 20100209
  Receipt Date: 20100126
  Transmission Date: 20100710
  Serious: Yes (Hospitalization, Other)
  Sender: FDA-Public Use
  Company Number: PHHY2009JP36745

PATIENT
  Sex: Male

DRUGS (16)
  1. AMN107 AMN+CAP [Suspect]
     Indication: CHRONIC MYELOID LEUKAEMIA
     Dosage: 800 MG/DAY
     Route: 048
     Dates: start: 20090728, end: 20090802
  2. METHYCOBAL [Concomitant]
     Dosage: 1500 UG, UNK
     Route: 048
     Dates: start: 20091225
  3. NIPOLAZIN [Concomitant]
     Dosage: 6 MG, UNK
     Route: 048
     Dates: start: 20091225
  4. ALOSITOL [Concomitant]
     Dosage: 200 MG, UNK
     Route: 048
     Dates: start: 20091225
  5. BIO THREE [Concomitant]
     Dosage: 3 DF, UNK
     Route: 048
     Dates: start: 20091225
  6. KINEDAK [Concomitant]
     Dosage: 150 MG, UNK
     Route: 048
     Dates: start: 20091225
  7. AMARYL [Concomitant]
     Dosage: UNK
     Route: 048
     Dates: start: 20091225
  8. BASEN [Concomitant]
     Dosage: 3 DF, UNK
     Route: 048
     Dates: start: 20091225
  9. NEUROTROPIN [Concomitant]
     Dosage: 4 DF, UNK
     Route: 048
     Dates: start: 20091225
  10. MUCOSTA [Concomitant]
     Dosage: 300 MG, UNK
     Route: 048
     Dates: start: 20091225
  11. LENDORMIN [Concomitant]
     Dosage: 0.25 MG, UNK
     Route: 048
     Dates: start: 20091225
  12. OMEPRAL [Concomitant]
     Dosage: UNK
     Route: 048
     Dates: start: 20091225
  13. HERBAL EXTRACTS NOS [Concomitant]
     Dosage: 15 G, UNK
     Dates: start: 20091225
  14. SPRYCEL [Concomitant]
     Indication: CHRONIC MYELOID LEUKAEMIA
     Dosage: 100 MG, UNK
     Route: 048
     Dates: start: 20090401
  15. SPRYCEL [Concomitant]
     Dosage: 100 MG, UNK
     Route: 048
     Dates: start: 20090514
  16. HYDREA [Concomitant]
     Indication: CHRONIC MYELOID LEUKAEMIA
     Dosage: UNK
     Route: 048
     Dates: start: 20090630, end: 20090929

REACTIONS (4)
  - ARTHRALGIA [None]
  - HEADACHE [None]
  - MALAISE [None]
  - MYALGIA [None]
